FAERS Safety Report 4658614-X (Version None)
Quarter: 2005Q2

REPORT INFORMATION
  Report Type: 
  Country: None (occurrence: None)
  Receive Date: 20050511
  Receipt Date: 20041203
  Transmission Date: 20051028
  Serious: Yes (Other)
  Sender: FDA-Public Use
  Company Number: GB-GLAXOSMITHKLINE-B0359489A

PATIENT
  Sex: Male

DRUGS (8)
  1. PAROXETINE HCL [Suspect]
     Route: 065
  2. DISULFIRAM [Concomitant]
  3. CETIRIZINE HCL [Concomitant]
  4. LANSOPRAZOLE [Concomitant]
  5. CIPROFLOXACIN [Concomitant]
  6. CLARITHROMYCIN [Concomitant]
  7. LOFEPRAMINE [Concomitant]
  8. CHLORDIAZEPOXIDE HCL [Concomitant]

REACTIONS (11)
  - ABNORMAL BEHAVIOUR [None]
  - AGGRESSION [None]
  - ALCOHOL USE [None]
  - AMNESIA [None]
  - COMPLETED SUICIDE [None]
  - DEPRESSED MOOD [None]
  - DISTURBANCE IN ATTENTION [None]
  - DRUG WITHDRAWAL SYNDROME [None]
  - INFLUENZA LIKE ILLNESS [None]
  - INSOMNIA [None]
  - SUICIDE ATTEMPT [None]
